FAERS Safety Report 8560844-1 (Version None)
Quarter: 2012Q3

REPORT INFORMATION
  Report Type: 
  Country: None (occurrence: None)
  Receive Date: 20120727
  Receipt Date: 20120727
  Transmission Date: 20120928
  Serious: Yes (Hospitalization)
  Sender: FDA-Public Use
  Company Number: None

PATIENT
  Age: 50 Year
  Sex: Female
  Weight: 108.3 kg

DRUGS (14)
  1. PHENERGAN HCL [Concomitant]
  2. SPIRIVA [Concomitant]
  3. ALBUTEROL [Concomitant]
  4. BACLOFEN [Concomitant]
  5. DILAUDID [Concomitant]
  6. LACTULOSE [Concomitant]
  7. CISPLATIN [Suspect]
     Indication: CHEMOTHERAPY
     Dosage: 80MG/M2 (667MG) ONCE IV RECENT
     Route: 042
  8. DICLOFENAC [Concomitant]
  9. NEXIUM [Concomitant]
  10. AMLODIPINE [Concomitant]
  11. FLUOXETINE HCL [Concomitant]
  12. AMITRIPTYLINE HCL [Concomitant]
  13. SIMVASTATIN [Concomitant]
  14. ZOFRAN [Concomitant]

REACTIONS (5)
  - RENAL FAILURE ACUTE [None]
  - NAUSEA [None]
  - DEHYDRATION [None]
  - HYPERURICAEMIA [None]
  - VOMITING [None]
